FAERS Safety Report 14838513 (Version 1)
Quarter: 2018Q2

REPORT INFORMATION
  Report Type: Spontaneous
  Country: US (occurrence: US)
  Receive Date: 20180502
  Receipt Date: 20180502
  Transmission Date: 20180711
  Serious: Yes (Other)
  Sender: FDA-Public Use
  Company Number: US-BAYER-2018-079437

PATIENT
  Weight: 93.88 kg

DRUGS (5)
  1. LYRICA [Concomitant]
     Active Substance: PREGABALIN
  2. BAYER ASPIRIN [Suspect]
     Active Substance: ASPIRIN
     Dosage: UNK
  3. DILANTIN [Concomitant]
     Active Substance: PHENYTOIN
  4. CIPRO [Suspect]
     Active Substance: CIPROFLOXACIN HYDROCHLORIDE
     Dosage: UNK
  5. NEURONTIN [Concomitant]
     Active Substance: GABAPENTIN

REACTIONS (3)
  - Rash [Unknown]
  - Gastric ulcer [None]
  - Drug hypersensitivity [Unknown]
